FAERS Safety Report 11448671 (Version 2)
Quarter: 2015Q3

REPORT INFORMATION
  Report Type: Spontaneous
  Country: BR (occurrence: BR)
  Receive Date: 20150902
  Receipt Date: 20150908
  Transmission Date: 20151125
  Serious: Yes (Hospitalization)
  Sender: FDA-Public Use
  Company Number: BR-ABBVIE-15P-020-1456568-00

PATIENT
  Age: 3 Year
  Sex: Male
  Weight: 14 kg

DRUGS (2)
  1. NOVALGIN [Concomitant]
     Active Substance: METAMIZOLE SODIUM
     Indication: PYREXIA
  2. KLARICID PEDIATRICO [Suspect]
     Active Substance: CLARITHROMYCIN
     Indication: TONSILLITIS
     Route: 065
     Dates: start: 20150818, end: 20150820

REACTIONS (11)
  - Pharyngitis bacterial [Recovering/Resolving]
  - Hypersensitivity [Recovering/Resolving]
  - Tonsillitis [Recovering/Resolving]
  - Tongue exfoliation [Recovering/Resolving]
  - Tongue pruritus [Recovering/Resolving]
  - Weight decreased [Recovering/Resolving]
  - Oral discomfort [Unknown]
  - Local swelling [Recovering/Resolving]
  - Gastritis [Recovering/Resolving]
  - Tongue discolouration [Recovering/Resolving]
  - Glossodynia [Recovering/Resolving]

NARRATIVE: CASE EVENT DATE: 201508
